FAERS Safety Report 6875874-5 (Version None)
Quarter: 2010Q3

REPORT INFORMATION
  Report Type: 
  Country: None (occurrence: None)
  Receive Date: 20100727
  Receipt Date: 20080303
  Transmission Date: 20110219
  Serious: Yes (Hospitalization, Other)
  Sender: FDA-Public Use
  Company Number: US-PFIZER INC-2006111320

PATIENT
  Sex: Male
  Weight: 117.9 kg

DRUGS (6)
  1. CELEBREX [Suspect]
     Indication: ARTHRALGIA
     Dates: start: 19990201
  2. CELEBREX [Suspect]
     Indication: RHEUMATOID ARTHRITIS
  3. BEXTRA [Suspect]
     Indication: ARTHRALGIA
     Dates: start: 20040401
  4. BEXTRA [Suspect]
     Indication: RHEUMATOID ARTHRITIS
  5. VIOXX [Suspect]
     Indication: ARTHRITIS
     Route: 048
     Dates: start: 19991001
  6. VIOXX [Suspect]
     Indication: RHEUMATOID ARTHRITIS

REACTIONS (2)
  - FLUID RETENTION [None]
  - MYOCARDIAL INFARCTION [None]
